FAERS Safety Report 4940008-0 (Version None)
Quarter: 2006Q1

REPORT INFORMATION
  Report Type: 
  Country: None (occurrence: None)
  Receive Date: 20060310
  Receipt Date: 20060302
  Transmission Date: 20060701
  Serious: Yes (Hospitalization)
  Sender: FDA-Public Use
  Company Number: US-JNJFOC-20051100796

PATIENT
  Sex: Female

DRUGS (6)
  1. REMICADE [Suspect]
     Dosage: THE PATIENT RECEIVED A TOTAL OF 3 INFLIXIMAB INFUSIONS
     Route: 042
  2. REMICADE [Suspect]
     Route: 042
  3. REMICADE [Suspect]
     Indication: RHEUMATOID ARTHRITIS
     Route: 042
  4. METHOTREXATE [Concomitant]
     Route: 048
  5. METHOTREXATE [Concomitant]
     Indication: RHEUMATOID ARTHRITIS
     Route: 048
  6. FOSAMAX [Concomitant]

REACTIONS (1)
  - DISSEMINATED TUBERCULOSIS [None]
